FAERS Safety Report 8828236 (Version 1)
Quarter: 2012Q4

REPORT INFORMATION
  Report Type: 
  Country: IN (occurrence: IN)
  Receive Date: 20121008
  Receipt Date: 20121008
  Transmission Date: 20130627
  Serious: Yes (Death, Hospitalization, Other)
  Sender: FDA-Public Use
  Company Number: PHHY2012IN087446

PATIENT
  Age: 59 Year
  Sex: Female

DRUGS (1)
  1. EXELON PATCH [Suspect]
     Indication: DEMENTIA
     Dosage: 4.6 mg, daily
     Route: 062
     Dates: start: 20120815

REACTIONS (3)
  - Dyspnoea [Fatal]
  - Heart rate decreased [Unknown]
  - Cerebrovascular accident [Unknown]
